FAERS Safety Report 23753356 (Version 1)
Quarter: 2024Q2

REPORT INFORMATION
  Report Type: Spontaneous
  Country: US (occurrence: None)
  Receive Date: 20240417
  Receipt Date: 20240417
  Transmission Date: 20240716
  Serious: No
  Sender: FDA-Public Use
  Company Number: None

PATIENT
  Age: 75 Year
  Sex: Female
  Weight: 72.57 kg

DRUGS (13)
  1. NIFEDIPINE [Suspect]
     Active Substance: NIFEDIPINE
     Indication: Hypertension
     Dosage: 1  PILL 1 PER DAY BY MOUTH
     Route: 048
     Dates: start: 20240401, end: 20240402
  2. CLOPIDOGREL [Concomitant]
  3. FUROSEMIDE [Concomitant]
  4. CLONIDINE [Concomitant]
  5. ASPIRIN [Concomitant]
     Active Substance: ASPIRIN
  6. ULTIMATE OMEGA [Concomitant]
  7. Metamucil [Concomitant]
  8. Flonaise [Concomitant]
  9. CALCIUM\CHOLECALCIFEROL [Concomitant]
     Active Substance: CALCIUM\CHOLECALCIFEROL
  10. MIRALAX [Concomitant]
     Active Substance: POLYETHYLENE GLYCOL 3350
  11. Allegra or Allegra D [Concomitant]
  12. Voltaren [Concomitant]
  13. TYLENOL [Concomitant]

REACTIONS (8)
  - Chest discomfort [None]
  - Abdominal pain upper [None]
  - Blood pressure increased [None]
  - Oedema peripheral [None]
  - Oedema peripheral [None]
  - Abdominal distension [None]
  - Chest pain [None]
  - Dyspnoea [None]

NARRATIVE: CASE EVENT DATE: 20240402
